FAERS Safety Report 13332737 (Version 2)
Quarter: 2017Q2

REPORT INFORMATION
  Report Type: Spontaneous
  Country: US (occurrence: US)
  Receive Date: 20170314
  Receipt Date: 20170426
  Transmission Date: 20170830
  Serious: No
  Sender: FDA-Public Use
  Company Number: US-PFIZER INC-2017100055

PATIENT
  Sex: Female

DRUGS (1)
  1. ADVIL COLD AND SINUS [Suspect]
     Active Substance: IBUPROFEN\PSEUDOEPHEDRINE HYDROCHLORIDE
     Dosage: UNK

REACTIONS (3)
  - Sleep disorder [Unknown]
  - Nasal dryness [Unknown]
  - Sinus congestion [Unknown]
